FAERS Safety Report 22279409 (Version 1)
Quarter: 2023Q2

REPORT INFORMATION
  Report Type: Spontaneous
  Country: US (occurrence: None)
  Receive Date: 20230502
  Receipt Date: 20230502
  Transmission Date: 20230722
  Serious: Yes (Life-Threatening)
  Sender: FDA-Public Use
  Company Number: None

PATIENT
  Age: 18 Year
  Sex: Female
  Weight: 55.1 kg

DRUGS (3)
  1. METHYLPREDNISOLONE SODIUM SUCCINATE [Suspect]
     Active Substance: METHYLPREDNISOLONE SODIUM SUCCINATE
     Indication: Premedication
     Dosage: OTHER FREQUENCY : ONCE;?
     Route: 042
     Dates: start: 20230411, end: 20230411
  2. acetaminophen (TYLENOL) 160 mg/5mL oral suspension 650 mg PO once [Concomitant]
     Dates: start: 20230411, end: 20230411
  3. diphenhydrAMINE (BENADRYL) 12.5 mg/5 mL oral syringe 25 mg PO once [Concomitant]
     Dates: start: 20230411, end: 20230411

REACTIONS (9)
  - Infusion related reaction [None]
  - Sneezing [None]
  - Cough [None]
  - Oropharyngeal pain [None]
  - Ear pruritus [None]
  - Vomiting [None]
  - Abdominal pain upper [None]
  - Urticaria [None]
  - Documented hypersensitivity to administered product [None]

NARRATIVE: CASE EVENT DATE: 20230411
